FAERS Safety Report 7038735-7 (Version None)
Quarter: 2010Q4

REPORT INFORMATION
  Report Type: 
  Country: None (occurrence: None)
  Receive Date: 20101012
  Receipt Date: 20101005
  Transmission Date: 20110411
  Serious: Yes (Other)
  Sender: FDA-Public Use
  Company Number: FR-BIOGENIDEC-2010BI034428

PATIENT
  Age: 38 Year
  Sex: Female

DRUGS (2)
  1. TYSABRI [Suspect]
     Indication: RELAPSING-REMITTING MULTIPLE SCLEROSIS
     Route: 042
     Dates: start: 20090618, end: 20091018
  2. TYSABRI [Suspect]
     Route: 042
     Dates: start: 20091230

REACTIONS (3)
  - GENERALISED OEDEMA [None]
  - THROMBOPHLEBITIS [None]
  - URTICARIA [None]
